FAERS Safety Report 12766834 (Version 3)
Quarter: 2016Q4

REPORT INFORMATION
  Report Type: Spontaneous
  Country: US (occurrence: US)
  Receive Date: 20160921
  Receipt Date: 20161028
  Transmission Date: 20170207
  Serious: Yes (Hospitalization, Other)
  Sender: FDA-Public Use
  Company Number: US-009507513-1609USA009219

PATIENT
  Age: 67 Year
  Sex: Male
  Weight: 96.6 kg

DRUGS (3)
  1. ASMANEX [Suspect]
     Active Substance: MOMETASONE FUROATE
     Indication: ASTHMA
  2. FORADIL [Concomitant]
     Active Substance: FORMOTEROL FUMARATE
     Dosage: UNK
  3. ASMANEX [Suspect]
     Active Substance: MOMETASONE FUROATE
     Indication: CHRONIC OBSTRUCTIVE PULMONARY DISEASE
     Dosage: 2 PUFF, QPM
     Route: 055
     Dates: start: 201411

REACTIONS (7)
  - Dehydration [Unknown]
  - Chest pain [Recovered/Resolved]
  - Dyspnoea [Unknown]
  - Foreign body [Unknown]
  - Foot fracture [Recovered/Resolved]
  - Fall [Recovered/Resolved]
  - Glaucoma [Not Recovered/Not Resolved]

NARRATIVE: CASE EVENT DATE: 2015
